FAERS Safety Report 9513781 (Version 5)
Quarter: 2013Q4

REPORT INFORMATION
  Report Type: Report from Study
  Country: JP (occurrence: JP)
  Receive Date: 20130910
  Receipt Date: 20131108
  Transmission Date: 20140711
  Serious: Yes (Hospitalization)
  Sender: FDA-Public Use
  Company Number: JP-ASTRAZENECA-2013SE67007

PATIENT
  Age: 22014 Day
  Sex: Female

DRUGS (19)
  1. VANDETANIB [Suspect]
     Indication: MEDULLARY THYROID CANCER
     Route: 048
     Dates: start: 20130411, end: 20130805
  2. VANDETANIB [Suspect]
     Indication: MEDULLARY THYROID CANCER
     Dosage: 200 MG DAILY, DOSE REDUCED, STOPPED DUE TO HYPERTENSION
     Route: 048
     Dates: start: 20130911, end: 20130913
  3. VANDETANIB [Suspect]
     Indication: MEDULLARY THYROID CANCER
     Dosage: 200 MG DAILY, DOSE REDUCED
     Route: 048
     Dates: start: 20130917
  4. ACETAMINOPHEN [Concomitant]
     Indication: PAIN
     Route: 048
  5. TEPRENONE [Concomitant]
     Indication: GASTRITIS
     Route: 048
  6. MIYA-BM [Concomitant]
     Indication: DIARRHOEA
     Route: 048
     Dates: start: 20130606
  7. LOPERAMIDE HYDROCHLORIDE [Concomitant]
     Indication: DIARRHOEA
     Route: 048
     Dates: start: 20130606
  8. CANDESARTAN CILEXETIL [Concomitant]
     Indication: HYPERTENSION
     Route: 048
  9. ATORVASTATIN CALCIUM HYDRATE [Concomitant]
     Indication: DYSLIPIDAEMIA
     Route: 048
  10. HYRDOID [Concomitant]
     Indication: DRY SKIN
     Route: 003
     Dates: start: 20130423
  11. SODIUM GUALENATE HYDRATE [Concomitant]
     Indication: GLOSSITIS
     Route: 060
     Dates: start: 20130423, end: 20130430
  12. SODIUM GUALENATE HYDRATE [Concomitant]
     Indication: GLOSSITIS
     Route: 060
     Dates: start: 20130430
  13. HYDROCORTISONE BUTYRATE [Concomitant]
     Indication: DERMATITIS ACNEIFORM
     Route: 003
     Dates: start: 20130507
  14. FUROSEMIDE [Concomitant]
     Indication: OEDEMA
     Route: 048
     Dates: start: 20130820
  15. PURIFIED SODIUM HYALURONATE [Concomitant]
     Indication: DRY EYE
     Dosage: AS REQUIRED
     Route: 047
     Dates: start: 20130819
  16. POTASSIUM L-ASPARTATE [Concomitant]
     Indication: HYPOKALAEMIA
     Route: 048
     Dates: start: 20130826, end: 20130901
  17. WHITE PETROLATUM [Concomitant]
     Indication: DIARRHOEA
     Dosage: AS REQUIRED
     Route: 042
     Dates: start: 20130819
  18. LEVOTHYROXINE SODIUM HYDRATE [Concomitant]
     Indication: HYPOTHYROIDISM
     Route: 048
     Dates: start: 20130820
  19. MICAMLO [Concomitant]
     Indication: HYPERTENSION
     Route: 048
     Dates: start: 20130507

REACTIONS (1)
  - Ascites [Not Recovered/Not Resolved]
